FAERS Safety Report 5560554-9 (Version None)
Quarter: 2007Q4

REPORT INFORMATION
  Report Type: 
  Country: None (occurrence: None)
  Receive Date: 20071215
  Receipt Date: 20071113
  Transmission Date: 20080405
  Serious: No
  Sender: FDA-Public Use
  Company Number: US-ABBOTT-07P-163-0424747-00

PATIENT
  Sex: Female
  Weight: 68.1 kg

DRUGS (6)
  1. HUMIRA [Suspect]
     Indication: CROHN'S DISEASE
     Route: 058
     Dates: start: 20070801, end: 20070801
  2. HUMIRA [Suspect]
     Route: 058
     Dates: start: 20070801, end: 20070901
  3. HUMIRA [Suspect]
     Route: 058
     Dates: start: 20071001
  4. MODAFINIL [Concomitant]
     Indication: NARCOLEPSY
     Route: 048
     Dates: start: 19990101
  5. ZOLPIDEM TARTRATE [Concomitant]
     Indication: INSOMNIA
     Route: 048
     Dates: start: 20050101
  6. OBETROL [Concomitant]
     Indication: NARCOLEPSY
     Route: 048
     Dates: start: 20030101

REACTIONS (6)
  - ARTHRALGIA [None]
  - DRUG INEFFECTIVE [None]
  - FORMICATION [None]
  - FREQUENT BOWEL MOVEMENTS [None]
  - MALAISE [None]
  - PALPITATIONS [None]
